FAERS Safety Report 20594348 (Version 2)
Quarter: 2022Q1

REPORT INFORMATION
  Report Type: Report from Study
  Country: PK (occurrence: PK)
  Receive Date: 20220315
  Receipt Date: 20220325
  Transmission Date: 20220423
  Serious: Yes (Death, Hospitalization)
  Sender: FDA-Public Use
  Company Number: PK-NOVARTISPH-NVSC2022PK058579

PATIENT
  Age: 41 Year
  Sex: Female

DRUGS (2)
  1. SECUKINUMAB [Suspect]
     Active Substance: SECUKINUMAB
     Indication: Psoriasis
     Dosage: 150 MG, QW  (150MG WEEKLY (4) THEN MONTHLY)
     Route: 058
     Dates: start: 20211028
  2. SECUKINUMAB [Suspect]
     Active Substance: SECUKINUMAB
     Dosage: 300 MG, QMO
     Route: 058
     Dates: end: 20220129

REACTIONS (6)
  - Cardiac arrest [Fatal]
  - Immunosuppression [Unknown]
  - Influenza [Unknown]
  - Pain [Unknown]
  - Pyrexia [Unknown]
  - Inappropriate schedule of product administration [Unknown]

NARRATIVE: CASE EVENT DATE: 20220203
